FAERS Safety Report 7265424-6 (Version None)
Quarter: 2011Q1

REPORT INFORMATION
  Report Type: 
  Country: None (occurrence: None)
  Receive Date: 20110131
  Receipt Date: 20110126
  Transmission Date: 20110831
  Serious: Yes (Death, Hospitalization)
  Sender: FDA-Public Use
  Company Number: IT-ASTRAZENECA-2011SE03346

PATIENT
  Age: 27333 Day
  Sex: Male

DRUGS (26)
  1. NORADRENALINE TARTARATE [Concomitant]
  2. KANRENOL [Concomitant]
  3. CISATRACURIUM BESYLATE [Concomitant]
  4. LONGASTATINA [Concomitant]
  5. CLEXANE [Concomitant]
  6. GASTROGRAFIN [Concomitant]
  7. PIPERACILLIN+TAZOBACTAM IBIGEN [Suspect]
     Dosage: 4 DOSAGE FORM DAILY, PIPERACILLIN 4 G + TAZOBACTAM 0.5 G
     Route: 042
     Dates: start: 20101222, end: 20101225
  8. AMIKACIN TEVA [Suspect]
     Indication: SEPSIS
     Dosage: 2 DF DAILY, 0.5 G / 2 ML
     Route: 042
     Dates: start: 20101220, end: 20101226
  9. DIFLUCAN [Concomitant]
  10. CORDARONE [Concomitant]
  11. MORPHINE HYDROCHLORIDE [Concomitant]
  12. MERREM [Suspect]
     Indication: SEPSIS
     Route: 042
     Dates: start: 20110104, end: 20110111
  13. CANCIDAS [Suspect]
     Route: 042
     Dates: start: 20101226, end: 20110112
  14. CIPROFLOXACINE KABI [Suspect]
     Indication: SEPSIS
     Dosage: 2DF DAILY, 200 MG / 100 ML
     Route: 042
     Dates: start: 20101227, end: 20110103
  15. ANTRA [Concomitant]
  16. PRO-EFFERALGAN [Concomitant]
  17. PIPERACILLIN+TAZOBACTAM IBIGEN [Suspect]
     Indication: SEPSIS
     Dosage: 2 DOSAGE FORM DAILYPIPERACILLIN 4 G+ TAZOBACTAM 0.5 G
     Route: 042
     Dates: start: 20101215, end: 20101221
  18. CANCIDAS [Suspect]
     Indication: SEPSIS
     Route: 042
     Dates: start: 20101225, end: 20101225
  19. KONAKION [Concomitant]
  20. PIPERACILLIN+TAZOBACTAM IBIGEN [Suspect]
     Dosage: 3 DOSAGE FORM DAILY, PIPERACILLIN 2 G + TAZOBACTAM 0.25 G
     Route: 042
     Dates: start: 20101226, end: 20101230
  21. TARGOCID [Suspect]
     Indication: SEPSIS
     Dosage: 2 DF DAILY, 200 MG / 3 ML
     Route: 042
     Dates: start: 20101225, end: 20110104
  22. ZYVOX [Suspect]
     Indication: SEPSIS
     Route: 042
     Dates: start: 20110104, end: 20110113
  23. ETHACRYNIC ACID [Concomitant]
  24. ALBUMINA BAXTER [Concomitant]
     Dosage: 50 G / L
  25. HUMULIN R [Concomitant]
  26. LASIX [Concomitant]

REACTIONS (1)
  - STEVENS-JOHNSON SYNDROME [None]
